FAERS Safety Report 10223957 (Version 2)
Quarter: 2014Q2

REPORT INFORMATION
  Report Type: Spontaneous
  Country: JP (occurrence: JP)
  Receive Date: 20140609
  Receipt Date: 20140613
  Transmission Date: 20141212
  Serious: Yes (Other)
  Sender: FDA-Public Use
  Company Number: JP-PFIZER INC-2014153096

PATIENT
  Age: 12 Month
  Sex: Male

DRUGS (1)
  1. METHYLPREDNISOLONE SODIUM SUCCINATE [Suspect]
     Indication: INFECTION
     Dosage: 30 MG/KG, DAILY
     Route: 042

REACTIONS (2)
  - Toxic skin eruption [Recovered/Resolved]
  - Histiocytosis haematophagic [Recovering/Resolving]
